FAERS Safety Report 16417015 (Version 1)
Quarter: 2019Q2

REPORT INFORMATION
  Report Type: Spontaneous
  Country: BR (occurrence: BR)
  Receive Date: 20190611
  Receipt Date: 20190611
  Transmission Date: 20190711
  Serious: Yes (Hospitalization, Other)
  Sender: FDA-Public Use
  Company Number: BR-PFIZER INC-2014318045

PATIENT
  Age: 44 Year
  Sex: Male

DRUGS (6)
  1. PANTOPRAZOLE [Suspect]
     Active Substance: PANTOPRAZOLE
     Dosage: 1 DF, QD
     Route: 048
  2. ALEKTOS [Suspect]
     Active Substance: BILASTINE
     Dosage: UNK, ALTERNATE DAY
     Route: 048
     Dates: end: 201502
  3. PANTOPRAZOLE [Suspect]
     Active Substance: PANTOPRAZOLE
     Indication: GASTROOESOPHAGEAL REFLUX DISEASE
     Dosage: 40 MG, 1X/DAY
     Route: 048
  4. CHLORTHALIDONE. [Suspect]
     Active Substance: CHLORTHALIDONE
     Indication: HYPERTENSION
     Dosage: 1 DF, 1X/DAY (25 MG)
     Route: 048
     Dates: end: 201410
  5. ALEKTOS [Suspect]
     Active Substance: BILASTINE
     Indication: URTICARIA CHOLINERGIC
     Dosage: 1 DF, QD (20 MG)
     Route: 048
     Dates: start: 201312, end: 20141012
  6. ARADOIS [Suspect]
     Active Substance: LOSARTAN POTASSIUM
     Indication: HYPERTENSION
     Dosage: 1 DF, 1X/DAY (25 MG)
     Route: 048

REACTIONS (8)
  - Radiculopathy [Not Recovered/Not Resolved]
  - Polyneuropathy [Not Recovered/Not Resolved]
  - Rhabdomyolysis [Not Recovered/Not Resolved]
  - Colitis [Not Recovered/Not Resolved]
  - Visual acuity reduced [Not Recovered/Not Resolved]
  - Pancreatitis [Not Recovered/Not Resolved]
  - Anal haemorrhage [Recovered/Resolved]
  - Fatigue [Not Recovered/Not Resolved]

NARRATIVE: CASE EVENT DATE: 20141006
